FAERS Safety Report 6152646-0 (Version None)
Quarter: 2009Q2

REPORT INFORMATION
  Report Type: 
  Country: None (occurrence: None)
  Receive Date: 20090413
  Receipt Date: 20090401
  Transmission Date: 20091009
  Serious: Yes (Other)
  Sender: FDA-Public Use
  Company Number: GR-ROCHE-625579

PATIENT
  Age: 48 Year
  Sex: Female

DRUGS (1)
  1. XELODA [Suspect]
     Dosage: FREQUENCY: DAILY. ROUTE REPORTED AS ^P.O^. FORM REPORTED AS FILM COATED (F.C) TABLETS.
     Route: 048
     Dates: start: 20090201

REACTIONS (1)
  - IRIDOCYCLITIS [None]
